FAERS Safety Report 5920161-2 (Version None)
Quarter: 2008Q4

REPORT INFORMATION
  Report Type: 
  Country: None (occurrence: None)
  Receive Date: 20081015
  Receipt Date: 20081015
  Transmission Date: 20090506
  Serious: Yes (Hospitalization)
  Sender: FDA-Public Use
  Company Number: None

PATIENT
  Age: 56 Year
  Sex: Male
  Weight: 127.69 kg

DRUGS (1)
  1. SULFAMETHOXAZOLE AND TRIMETHOPRIM [Suspect]
     Indication: INFECTION
     Dosage: 1 TAB BID PO
     Route: 048
     Dates: start: 20080923, end: 20081001

REACTIONS (2)
  - DERMATITIS ALLERGIC [None]
  - UPPER RESPIRATORY TRACT INFECTION [None]
